FAERS Safety Report 7361038-8 (Version None)
Quarter: 2011Q1

REPORT INFORMATION
  Report Type: 
  Country: None (occurrence: None)
  Receive Date: 20110318
  Receipt Date: 20110309
  Transmission Date: 20110831
  Serious: Yes (Hospitalization)
  Sender: FDA-Public Use
  Company Number: FR-PFIZER INC-2011057695

PATIENT
  Age: 83 Year
  Sex: Male

DRUGS (8)
  1. FLECAINE [Concomitant]
     Dosage: 50 MG, 1 UNIT DAILY
  2. MODOPAR [Concomitant]
     Dosage: 500 MG, 4 UNITS DAILY
  3. ATARAX [Suspect]
     Dosage: 25 MG, 2X/DAY
     Route: 048
     Dates: end: 20101228
  4. TROSPIUM CHLORIDE [Suspect]
     Dosage: 1 UNIT
     Route: 048
     Dates: end: 20101228
  5. RIVASTIGMINE [Concomitant]
     Dosage: 9.5 MG, 1 PATCH DAILY
  6. BISOPROLOL FUMARATE [Concomitant]
     Dosage: 5 MG, 1 UNIT DAILY
  7. KARDEGIC [Concomitant]
     Dosage: 75 MG, 1 UNIT DAILY
  8. SERESTA [Concomitant]
     Dosage: 10 MG, 1 UNIT DAILY

REACTIONS (6)
  - DISORIENTATION [None]
  - URINARY RETENTION [None]
  - ABDOMINAL PAIN [None]
  - DEHYDRATION [None]
  - DIARRHOEA [None]
  - HYPOREFLEXIA [None]
